FAERS Safety Report 9391348 (Version 1)
Quarter: 2013Q3

REPORT INFORMATION
  Report Type: Spontaneous
  Country: ES (occurrence: ES)
  Receive Date: 20130709
  Receipt Date: 20130709
  Transmission Date: 20140515
  Serious: Yes (Hospitalization)
  Sender: FDA-Public Use
  Company Number: ES-PFIZER INC-2013197467

PATIENT
  Age: 87 Year
  Sex: Male

DRUGS (5)
  1. CARDURAN NEO [Suspect]
     Indication: HYPERTENSION
     Dosage: 4 MG, 1X/DAY
     Route: 048
  2. IRBESARTAN [Interacting]
     Indication: HYPERTENSION
     Dosage: 150 MG, 1X/DAY
     Route: 048
     Dates: start: 2011, end: 20120531
  3. FUROSEMIDE [Interacting]
     Indication: RENAL FAILURE CHRONIC
     Dosage: 40 MG, 1X/DAY
     Route: 048
     Dates: start: 2011, end: 20120531
  4. OMEPRAZOLE [Concomitant]
     Indication: PROPHYLAXIS
     Dosage: 20 MG, 1X/DAY
     Route: 048
  5. SINTROM [Concomitant]
     Dosage: 1 MG, UNK
     Dates: start: 2010, end: 20120531

REACTIONS (8)
  - Renal failure chronic [Recovered/Resolved]
  - Hyperkalaemia [Recovered/Resolved]
  - Drug interaction [Recovered/Resolved]
  - Presyncope [Unknown]
  - Nausea [Unknown]
  - Vomiting [Unknown]
  - Diarrhoea [Unknown]
  - Fluid intake reduced [Unknown]
